FAERS Safety Report 5260810-8 (Version None)
Quarter: 2007Q1

REPORT INFORMATION
  Report Type: 
  Country: None (occurrence: None)
  Receive Date: 20070309
  Receipt Date: 20070301
  Transmission Date: 20070707
  Serious: Yes (Hospitalization)
  Sender: FDA-Public Use
  Company Number: JP-JNJFOC-20061104833

PATIENT
  Sex: Male
  Weight: 51 kg

DRUGS (6)
  1. GALANTAMINE HYDROBROMIDE [Suspect]
     Indication: DEMENTIA ALZHEIMER'S TYPE
     Route: 048
  2. PLACEBO [Suspect]
     Indication: DEMENTIA ALZHEIMER'S TYPE
     Route: 048
  3. RHEUMATREX [Concomitant]
     Indication: RHEUMATOID ARTHRITIS
     Route: 048
  4. PREDONINE [Concomitant]
     Indication: RHEUMATOID ARTHRITIS
     Route: 048
  5. MARZULENE-S [Concomitant]
     Indication: GASTRITIS PROPHYLAXIS
     Route: 048
  6. FOLIAMIN [Concomitant]
     Indication: VITAMIN SUPPLEMENTATION
     Route: 048

REACTIONS (3)
  - ANAEMIA FOLATE DEFICIENCY [None]
  - PLEURAL EFFUSION [None]
  - PNEUMONIA [None]
